FAERS Safety Report 7247445-2 (Version None)
Quarter: 2011Q1

REPORT INFORMATION
  Report Type: 
  Country: None (occurrence: None)
  Receive Date: 20110127
  Receipt Date: 20110124
  Transmission Date: 20110831
  Serious: Yes (Death, Hospitalization, Other)
  Sender: FDA-Public Use
  Company Number: PHHY2010CA31553

PATIENT
  Sex: Male

DRUGS (3)
  1. SANDOSTATIN LAR [Suspect]
     Dosage: 30 MG EVERY 2 WEEKS
     Route: 030
  2. SANDOSTATIN LAR [Suspect]
     Indication: METASTATIC CARCINOID TUMOUR
     Dosage: 30 MG, EVERY 4 WEEKS
     Route: 030
     Dates: start: 20090618
  3. SANDOSTATIN LAR [Suspect]
     Dosage: 20 MG EVERY 4 WEEKS
     Route: 030
     Dates: end: 20101106

REACTIONS (9)
  - CONVULSION [None]
  - GENERAL PHYSICAL HEALTH DETERIORATION [None]
  - CACHEXIA [None]
  - DIARRHOEA [None]
  - FATIGUE [None]
  - DEATH [None]
  - WEIGHT DECREASED [None]
  - PALLIATIVE CARE [None]
  - DECREASED APPETITE [None]
